FAERS Safety Report 5220117-1 (Version None)
Quarter: 2007Q1

REPORT INFORMATION
  Report Type: 
  Country: None (occurrence: None)
  Receive Date: 20061121
  Receipt Date: 20060814
  Transmission Date: 20070707
  Serious: No
  Sender: FDA-Public Use
  Company Number: TPA2006A01342

PATIENT
  Age: 46 Year
  Sex: Female
  Weight: 54.4316 kg

DRUGS (4)
  1. ROZEREM [Suspect]
     Indication: INSOMNIA
     Dosage: UNK., UNKNOWN, PER ORAL
     Route: 048
     Dates: start: 20060731
  2. LUNESTA [Suspect]
     Indication: INSOMNIA
     Dosage: 2 MG, AS REQUIRED, UNKNOWN
     Dates: start: 20050701, end: 20050901
  3. LUNESTA [Suspect]
     Indication: INSOMNIA
     Dosage: 2 MG, AS REQUIRED, UNKNOWN
     Dates: start: 20060601, end: 20060730
  4. LEVLITE (ETHINYLESTRADIOL, LEVONORGESTREL) [Concomitant]

REACTIONS (1)
  - DRUG INEFFECTIVE [None]
